FAERS Safety Report 13402735 (Version 1)
Quarter: 2017Q2

REPORT INFORMATION
  Report Type: Spontaneous
  Country: US (occurrence: US)
  Receive Date: 20170404
  Receipt Date: 20170404
  Transmission Date: 20170830
  Serious: No
  Sender: FDA-Public Use
  Company Number: US-ROCHE-1870368

PATIENT
  Sex: Female
  Weight: 41 kg

DRUGS (6)
  1. MOTRIN [Concomitant]
     Active Substance: IBUPROFEN
     Dosage: 100 MG/5 ML SUSPENSION
     Route: 065
  2. ROCEPHIN [Suspect]
     Active Substance: CEFTRIAXONE SODIUM
     Indication: PRODUCT USED FOR UNKNOWN INDICATION
     Route: 065
  3. GENOTROPIN [Concomitant]
     Active Substance: SOMATROPIN
     Route: 065
     Dates: start: 20141204
  4. PREDNISONE. [Concomitant]
     Active Substance: PREDNISONE
     Dosage: 5 MG/ML
     Route: 065
  5. LEVOTHYROXINE SODIUM. [Concomitant]
     Active Substance: LEVOTHYROXINE SODIUM
     Route: 065
  6. ADVIL [Concomitant]
     Active Substance: IBUPROFEN
     Dosage: 100 MG/5 ML SUSPENSION
     Route: 065

REACTIONS (1)
  - Rash [Unknown]
